FAERS Safety Report 5688151-5 (Version None)
Quarter: 2008Q1

REPORT INFORMATION
  Report Type: 
  Country: None (occurrence: None)
  Receive Date: 20080327
  Receipt Date: 20080311
  Transmission Date: 20080703
  Serious: Yes (Death, Other)
  Sender: FDA-Public Use
  Company Number: 2008JP001038

PATIENT
  Age: 39 Year
  Sex: Female

DRUGS (5)
  1. PROGRAF [Suspect]
     Indication: BONE MARROW TRANSPLANT
  2. ETANERCEPT (ETANERCEPT) [Concomitant]
  3. ANTI-THYMOGLOBLIN (ANTITHYMOCYTE IMMUNOGLOBULIN) [Concomitant]
  4. MYCOPHENOLATE MOFETIL [Concomitant]
  5. METHYLPREDNISOLONE [Concomitant]

REACTIONS (8)
  - ABDOMINAL PAIN [None]
  - ANXIETY [None]
  - GRAFT VERSUS HOST DISEASE [None]
  - IDIOPATHIC PNEUMONIA SYNDROME [None]
  - JAUNDICE [None]
  - NO THERAPEUTIC RESPONSE [None]
  - ORAL INTAKE REDUCED [None]
  - THROMBOTIC MICROANGIOPATHY [None]
